FAERS Safety Report 24130542 (Version 1)
Quarter: 2024Q3

REPORT INFORMATION
  Report Type: Spontaneous
  Country: US (occurrence: None)
  Receive Date: 20240724
  Receipt Date: 20240724
  Transmission Date: 20241016
  Serious: No
  Sender: ASTRAZENECA
  Company Number: 2024A161631

PATIENT
  Sex: Female

DRUGS (2)
  1. BUDESONIDE\FORMOTEROL [Suspect]
     Active Substance: BUDESONIDE\FORMOTEROL
     Dosage: UNKNOWN160.0UG UNKNOWN
     Route: 055
  2. SYMBICORT [Suspect]
     Active Substance: BUDESONIDE\FORMOTEROL FUMARATE DIHYDRATE
     Dosage: UNKNOWN160.0UG UNKNOWN
     Route: 055

REACTIONS (8)
  - Drug ineffective [Unknown]
  - Psoriasis [Unknown]
  - Headache [Unknown]
  - Cough [Unknown]
  - Intentional product misuse [Unknown]
  - Off label use [Unknown]
  - Wrong technique in device usage process [Unknown]
  - Fungal infection [Unknown]
